FAERS Safety Report 8200094-1 (Version None)
Quarter: 2012Q1

REPORT INFORMATION
  Report Type: 
  Country: None (occurrence: None)
  Receive Date: 20120306
  Receipt Date: 20120223
  Transmission Date: 20120608
  Serious: Yes (Hospitalization)
  Sender: FDA-Public Use
  Company Number: 2012SP010562

PATIENT
  Age: 47 Year
  Sex: Female

DRUGS (3)
  1. VICTRELIS [Suspect]
     Indication: HEPATITIS
     Dosage: 800 MG;TID;PO
     Route: 048
     Dates: start: 20111101
  2. RIBAVIRIN [Suspect]
     Indication: HEPATITIS
  3. PEGASYS [Suspect]
     Indication: HEPATITIS

REACTIONS (6)
  - NEUTROPENIA [None]
  - SUBCUTANEOUS ABSCESS [None]
  - URINARY TRACT INFECTION [None]
  - ACNE [None]
  - CELLULITIS [None]
  - STAPHYLOCOCCAL INFECTION [None]
